FAERS Safety Report 18469387 (Version 5)
Quarter: 2021Q4

REPORT INFORMATION
  Report Type: Report from Study
  Country: CA (occurrence: CA)
  Receive Date: 20201105
  Receipt Date: 20211224
  Transmission Date: 20220304
  Serious: Yes (Hospitalization, Other)
  Sender: FDA-Public Use
  Company Number: CA-SHIRE-CA202009905

PATIENT
  Sex: Female

DRUGS (10)
  1. HUMAN IMMUNOGLOBULIN G [Suspect]
     Active Substance: HUMAN IMMUNOGLOBULIN G
     Indication: Primary immunodeficiency syndrome
     Dosage: UNK
     Route: 042
     Dates: start: 20130101
  2. HUMAN IMMUNOGLOBULIN G [Suspect]
     Active Substance: HUMAN IMMUNOGLOBULIN G
     Indication: Asthma
     Dosage: 6 GRAM, 1/WEEK
     Route: 058
     Dates: start: 20180713
  3. HUMAN IMMUNOGLOBULIN G [Suspect]
     Active Substance: HUMAN IMMUNOGLOBULIN G
     Dosage: 6 GRAM, 1/WEEK
     Route: 065
     Dates: start: 20180713
  4. HUMAN IMMUNOGLOBULIN G [Suspect]
     Active Substance: HUMAN IMMUNOGLOBULIN G
     Dosage: 6 GRAM, 1/WEEK
     Route: 065
     Dates: start: 20180713
  5. COVID-19 VACCINE NOS [Suspect]
     Active Substance: COVID-19 VACCINE NOS
     Indication: Product used for unknown indication
     Route: 065
  6. VENTOLIN [Concomitant]
     Active Substance: ALBUTEROL SULFATE
     Indication: Product used for unknown indication
     Dosage: UNK
     Route: 065
  7. CETIRIZINE HYDROCHLORIDE [Concomitant]
     Active Substance: CETIRIZINE HYDROCHLORIDE
     Indication: Product used for unknown indication
     Dosage: UNK
  8. HIZENTRA [Concomitant]
     Active Substance: HUMAN IMMUNOGLOBULIN G
     Indication: Product used for unknown indication
  9. PROBIOTICS NOS [Concomitant]
     Active Substance: PROBIOTICS NOS
     Indication: Product used for unknown indication
     Dosage: UNK
     Route: 065
  10. UNSPECIFIED INGREDIENT [Concomitant]
     Active Substance: UNSPECIFIED INGREDIENT
     Indication: Product used for unknown indication
     Dosage: UNK
     Route: 065

REACTIONS (32)
  - Oral herpes [Recovered/Resolved]
  - Pain [Unknown]
  - Paraesthesia [Unknown]
  - Cataract [Not Recovered/Not Resolved]
  - Embolism [Not Recovered/Not Resolved]
  - Vaccination failure [Unknown]
  - Lower respiratory tract infection [Not Recovered/Not Resolved]
  - Chest pain [Unknown]
  - Alopecia [Recovering/Resolving]
  - Nasopharyngitis [Unknown]
  - Blood albumin decreased [Unknown]
  - Bronchitis [Recovered/Resolved]
  - Blood chloride increased [Unknown]
  - Fibrin D dimer increased [Unknown]
  - Blood immunoglobulin G abnormal [Unknown]
  - Stress [Unknown]
  - Oral pain [Recovered/Resolved]
  - Rhinalgia [Recovered/Resolved]
  - Herpes zoster [Unknown]
  - Arthritis [Recovering/Resolving]
  - Infusion site mass [Recovered/Resolved]
  - Infusion site haemorrhage [Not Recovered/Not Resolved]
  - Insomnia [Unknown]
  - Infusion site bruising [Not Recovered/Not Resolved]
  - Infusion site pain [Unknown]
  - Fatigue [Unknown]
  - Pruritus [Not Recovered/Not Resolved]
  - Needle issue [Not Recovered/Not Resolved]
  - Medication error [Not Recovered/Not Resolved]
  - Product packaging issue [Not Recovered/Not Resolved]
  - Injection site pain [Unknown]
  - Injection site haemorrhage [Unknown]

NARRATIVE: CASE EVENT DATE: 20190101
